FAERS Safety Report 6662137-6 (Version None)
Quarter: 2010Q1

REPORT INFORMATION
  Report Type: 
  Country: None (occurrence: None)
  Receive Date: 20100329
  Receipt Date: 20100317
  Transmission Date: 20100710
  Serious: Yes (Death, Hospitalization)
  Sender: FDA-Public Use
  Company Number: 2009AC000250

PATIENT
  Age: 71 Year
  Sex: Female
  Weight: 35.8342 kg

DRUGS (57)
  1. DIGOXIN [Suspect]
     Dosage: 0.125 MG; QD; PO
     Route: 048
     Dates: start: 20070601, end: 20071128
  2. PROTONIX [Concomitant]
  3. COREG [Concomitant]
  4. PROCARDIA [Concomitant]
  5. ALBUTEROL SULFATE AUTOHALER [Concomitant]
  6. OXYGEN [Concomitant]
  7. TORADOL [Concomitant]
  8. ALTACE [Concomitant]
  9. CORDARONE [Concomitant]
  10. XOPENEX [Concomitant]
  11. LASIX [Concomitant]
  12. COREG [Concomitant]
  13. AMIODARONE HCL [Concomitant]
  14. POTASSIUM CHLORIDE [Concomitant]
  15. NEURONTIN [Concomitant]
  16. PROTONIX [Concomitant]
  17. AMIODARONE HCL [Concomitant]
  18. LOVENOX [Concomitant]
  19. ASPIRIN [Concomitant]
  20. COREG [Concomitant]
  21. PROCARDIA XL [Concomitant]
  22. LASIX [Concomitant]
  23. POTASSIUM [Concomitant]
  24. TPN ELECTROLYTES IN PLASTIC CONTAINER [Concomitant]
  25. MORPHINE SULFATE [Concomitant]
  26. ATROPINE [Concomitant]
  27. LORAZEPAM [Concomitant]
  28. COMPAZINE [Concomitant]
  29. PHENOBARBITAL TAB [Concomitant]
  30. ACETAMINOPHEN [Concomitant]
  31. LIBRIUM [Concomitant]
  32. HALOPERIDOL [Concomitant]
  33. L-HYOSCAMINE SULFATE [Concomitant]
  34. PROCARDIA [Concomitant]
  35. MEGACE [Concomitant]
  36. LEVAQUIN [Concomitant]
  37. AMBIEN [Concomitant]
  38. LORTAB [Concomitant]
  39. SENNA [Concomitant]
  40. ALBUTEROL [Concomitant]
  41. VICODIN [Concomitant]
  42. LASIX [Concomitant]
  43. LOTREL [Concomitant]
  44. PROCARDIA [Concomitant]
  45. ALLEGRA [Concomitant]
  46. ALTACE [Concomitant]
  47. PAXIL [Concomitant]
  48. PREVACID [Concomitant]
  49. NITROGLYCERIN [Concomitant]
  50. FOSAMAX [Concomitant]
  51. K-DUR [Concomitant]
  52. AMIODARONE HCL [Concomitant]
  53. COREG [Concomitant]
  54. PROZAC [Concomitant]
  55. MULTI-VITAMINS [Concomitant]
  56. TRAMADOL HCL [Concomitant]
  57. ULTRAM [Concomitant]

REACTIONS (41)
  - ABASIA [None]
  - ABDOMINAL MASS [None]
  - ABSCESS INTESTINAL [None]
  - ANAEMIA [None]
  - BACK PAIN [None]
  - BALANCE DISORDER [None]
  - BLINDNESS UNILATERAL [None]
  - CACHEXIA [None]
  - CARDIAC ARREST [None]
  - CARDIAC FAILURE CONGESTIVE [None]
  - CHEST PAIN [None]
  - COLITIS ISCHAEMIC [None]
  - CONDITION AGGRAVATED [None]
  - CONFUSIONAL STATE [None]
  - DECREASED APPETITE [None]
  - DEHYDRATION [None]
  - DIZZINESS [None]
  - ECONOMIC PROBLEM [None]
  - EMPHYSEMA [None]
  - FAILURE TO THRIVE [None]
  - FALL [None]
  - INTESTINAL DILATATION [None]
  - KLEBSIELLA INFECTION [None]
  - LIVER FUNCTION TEST ABNORMAL [None]
  - LOCALISED INTRAABDOMINAL FLUID COLLECTION [None]
  - MACULAR DEGENERATION [None]
  - MALNUTRITION [None]
  - MULTIPLE INJURIES [None]
  - MUSCULAR WEAKNESS [None]
  - NECK PAIN [None]
  - PAIN [None]
  - PAIN IN EXTREMITY [None]
  - PNEUMONIA [None]
  - PROTHROMBIN TIME PROLONGED [None]
  - RECTAL HAEMORRHAGE [None]
  - RENAL FAILURE [None]
  - RETINAL ARTERY OCCLUSION [None]
  - SOCIAL PROBLEM [None]
  - THERAPEUTIC AGENT TOXICITY [None]
  - URINARY TRACT INFECTION BACTERIAL [None]
  - WEIGHT DECREASED [None]
